FAERS Safety Report 4484231-0 (Version None)
Quarter: 2004Q3

REPORT INFORMATION
  Report Type: 
  Country: None (occurrence: None)
  Receive Date: 20040921
  Receipt Date: 20040206
  Transmission Date: 20050211
  Serious: Yes (Hospitalization)
  Sender: FDA-Public Use
  Company Number: 163-20785-04020208

PATIENT
  Age: 76 Year
  Sex: Female

DRUGS (4)
  1. THALOMID [Suspect]
     Indication: BRONCHIAL CARCINOMA
     Dosage: 50 MG, DAILY, ORAL
     Route: 048
     Dates: start: 20031015, end: 20040210
  2. THALOMID [Suspect]
     Indication: LUNG NEOPLASM MALIGNANT
     Dosage: 50 MG, DAILY, ORAL
     Route: 048
     Dates: start: 20031015, end: 20040210
  3. NAVELBINE [Concomitant]
  4. RADIATION THERAPY [Concomitant]

REACTIONS (2)
  - CEREBROVASCULAR ACCIDENT [None]
  - SKIN BURNING SENSATION [None]
